FAERS Safety Report 12990814 (Version 1)
Quarter: 2016Q4

REPORT INFORMATION
  Report Type: Report from Study
  Country: US (occurrence: US)
  Receive Date: 20161201
  Receipt Date: 20161201
  Transmission Date: 20170207
  Serious: No
  Sender: FDA-Public Use
  Company Number: US-009507513-1611USA005393

PATIENT
  Age: 27 Year
  Sex: Male

DRUGS (6)
  1. PRIMAXIN IV [Suspect]
     Active Substance: CILASTATIN SODIUM\IMIPENEM
  2. AMIKACIN [Suspect]
     Active Substance: AMIKACIN
  3. SULFAMETHOXAZOLE (+) TRIMETHOPRIM [Suspect]
     Active Substance: SULFAMETHOXAZOLE\TRIMETHOPRIM
  4. TIGECYCLINE. [Suspect]
     Active Substance: TIGECYCLINE
  5. COLISTIN [Suspect]
     Active Substance: COLISTIN
  6. INVANZ [Suspect]
     Active Substance: ERTAPENEM SODIUM

REACTIONS (1)
  - Drug ineffective [Unknown]
